FAERS Safety Report 13025916 (Version 7)
Quarter: 2018Q2

REPORT INFORMATION
  Report Type: Spontaneous
  Country: US (occurrence: US)
  Receive Date: 20161214
  Receipt Date: 20180430
  Transmission Date: 20180711
  Serious: Yes (Congenital Anomaly, Other)
  Sender: FDA-Public Use
  Company Number: PHEH2016US032280

PATIENT
  Sex: Male

DRUGS (4)
  1. ONDANSETRON [Suspect]
     Active Substance: ONDANSETRON
     Indication: FOETAL EXPOSURE DURING PREGNANCY
     Dosage: MOTHER^S DOSE: 4 MG, UNK
     Route: 064
  2. ZOFRAN [Suspect]
     Active Substance: ONDANSETRON HYDROCHLORIDE
     Indication: FOETAL EXPOSURE DURING PREGNANCY
     Dosage: MOTHER DOSE: 4 MG, (Q6H)
     Route: 064
  3. ONDANSETRON [Suspect]
     Active Substance: ONDANSETRON
     Indication: FOETAL EXPOSURE DURING PREGNANCY
     Dosage: MOTHER^S DOSE: 1 DF, Q8H
     Route: 064
  4. ZOFRAN [Suspect]
     Active Substance: ONDANSETRON HYDROCHLORIDE
     Indication: FOETAL EXPOSURE DURING PREGNANCY
     Dosage: MOTHER DOSE: 1 DF, (Q8H)
     Route: 064

REACTIONS (40)
  - Ventricular septal defect [Unknown]
  - Left-to-right cardiac shunt [Unknown]
  - Developmental delay [Unknown]
  - Injury [Unknown]
  - Neurological decompensation [Unknown]
  - Neonatal hypoxia [Unknown]
  - Mitral valve prolapse [Unknown]
  - Eczema [Unknown]
  - Upper respiratory tract infection [Unknown]
  - Bronchial hyperreactivity [Unknown]
  - Lung hyperinflation [Unknown]
  - Cardiac failure congestive [Unknown]
  - Cardiac murmur [Unknown]
  - Fluid imbalance [Unknown]
  - Viral infection [Unknown]
  - Sepsis neonatal [Unknown]
  - Roseola [Unknown]
  - Radial head dislocation [Unknown]
  - Skin disorder [Unknown]
  - Foetal exposure during pregnancy [Unknown]
  - Dermatitis diaper [Unknown]
  - Sinusitis [Unknown]
  - Cough [Unknown]
  - Nasal congestion [Unknown]
  - Cytogenetic abnormality [Unknown]
  - Pulmonary oedema [Unknown]
  - Speech disorder [Unknown]
  - Pyrexia [Unknown]
  - Pain [Unknown]
  - Hyperbilirubinaemia neonatal [Unknown]
  - Atelectasis [Unknown]
  - Oral pain [Unknown]
  - Cardiomegaly [Unknown]
  - Conjunctivitis [Unknown]
  - Peripheral coldness [Unknown]
  - Stomatitis [Unknown]
  - Heart disease congenital [Unknown]
  - Hypoglycaemia neonatal [Unknown]
  - Left atrial dilatation [Unknown]
  - Language disorder [Unknown]
